FAERS Safety Report 9650729 (Version 2)
Quarter: 2013Q4

REPORT INFORMATION
  Report Type: Spontaneous
  Country: JP (occurrence: JP)
  Receive Date: 20131029
  Receipt Date: 20131029
  Transmission Date: 20140711
  Serious: Yes (Hospitalization, Other)
  Sender: FDA-Public Use
  Company Number: JP-BRISTOL-MYERS SQUIBB COMPANY-19219351

PATIENT
  Age: 45 Year
  Sex: Female
  Weight: 85 kg

DRUGS (6)
  1. BYDUREON [Suspect]
     Indication: TYPE 2 DIABETES MELLITUS
     Route: 058
     Dates: start: 20130702, end: 201308
  2. AMARYL [Concomitant]
     Route: 048
  3. METGLUCO [Concomitant]
     Route: 058
  4. LIPITOR [Concomitant]
     Route: 058
  5. ADALAT-CR [Concomitant]
     Route: 058
  6. MICARDIS [Concomitant]
     Route: 058

REACTIONS (2)
  - Skin induration [Not Recovered/Not Resolved]
  - Calculus ureteric [Recovering/Resolving]
